FAERS Safety Report 5094046-0 (Version None)
Quarter: 2006Q3

REPORT INFORMATION
  Report Type: 
  Country: None (occurrence: None)
  Receive Date: 20060831
  Receipt Date: 20040818
  Transmission Date: 20061208
  Serious: Yes (Disabling)
  Sender: FDA-Public Use
  Company Number: US-ROCHE-378079

PATIENT
  Age: 34 Year
  Sex: Female
  Weight: 88.5 kg

DRUGS (1)
  1. ACCUTANE [Suspect]
     Indication: ACNE
     Route: 048
     Dates: start: 19930515, end: 19930615

REACTIONS (22)
  - ANAEMIA [None]
  - ANXIETY [None]
  - BACK PAIN [None]
  - CHRONIC FATIGUE SYNDROME [None]
  - COLITIS ULCERATIVE [None]
  - DEPRESSION [None]
  - DIARRHOEA [None]
  - DYSPHAGIA [None]
  - ELECTROCARDIOGRAM T WAVE ABNORMAL [None]
  - GASTROINTESTINAL CANDIDIASIS [None]
  - GASTROINTESTINAL DISORDER [None]
  - HYPERCOAGULATION [None]
  - INFLAMMATORY BOWEL DISEASE [None]
  - INTESTINAL HAEMORRHAGE [None]
  - IRRITABLE BOWEL SYNDROME [None]
  - LYMPHADENITIS [None]
  - MENOMETRORRHAGIA [None]
  - METAL POISONING [None]
  - OESOPHAGITIS [None]
  - RECTAL HAEMORRHAGE [None]
  - SINUS TACHYCARDIA [None]
  - UTERINE LEIOMYOMA [None]
